FAERS Safety Report 4301814-9 (Version None)
Quarter: 2004Q1

REPORT INFORMATION
  Report Type: 
  Country: None (occurrence: None)
  Receive Date: 20040126
  Receipt Date: 20031007
  Transmission Date: 20041129
  Serious: No
  Sender: FDA-Public Use
  Company Number: USA031049274

PATIENT
  Age: 13 Year
  Sex: Female
  Weight: 64 kg

DRUGS (2)
  1. STRATTERA [Suspect]
     Indication: ATTENTION DEFICIT/HYPERACTIVITY DISORDER
     Dosage: 60 MG
     Dates: start: 20030828
  2. STRATTERA [Suspect]
     Indication: DEPRESSION
     Dosage: 60 MG
     Dates: start: 20030828

REACTIONS (3)
  - DYSPNOEA [None]
  - LETHARGY [None]
  - MONONUCLEOSIS SYNDROME [None]
